FAERS Safety Report 4323616-X (Version None)
Quarter: 2004Q1

REPORT INFORMATION
  Report Type: 
  Country: None (occurrence: None)
  Receive Date: 20040322
  Receipt Date: 20040310
  Transmission Date: 20041129
  Serious: Yes (Hospitalization)
  Sender: FDA-Public Use
  Company Number: GB-JNJFOC-20040302355

PATIENT
  Age: 65 Year
  Sex: Female

DRUGS (6)
  1. REMICADE [Suspect]
     Indication: RHEUMATOID ARTHRITIS
     Dosage: 3 MG/KG, INTRAVENOUS
     Route: 042
     Dates: start: 20020101
  2. PREDNISOLONE [Concomitant]
  3. CELECOXIB (CELECOXIB) [Concomitant]
  4. BENDROFLUAZIDE (BENDROFLUMETHIAZIDE) [Concomitant]
  5. METHOREXATE (METHOTREXATE) [Concomitant]
  6. RISEDRONATE SODIUM (RISEDRONATE SODIUM) [Concomitant]

REACTIONS (2)
  - ATRIAL FIBRILLATION [None]
  - PERICARDITIS [None]
